FAERS Safety Report 24622423 (Version 2)
Quarter: 2024Q4

REPORT INFORMATION
  Report Type: Report from Study
  Country: US (occurrence: US)
  Receive Date: 20241115
  Receipt Date: 20241201
  Transmission Date: 20250114
  Serious: Yes (Other)
  Sender: ABBVIE
  Company Number: US-ABBVIE-5996586

PATIENT
  Age: 77 Year
  Sex: Female
  Weight: 99.336 kg

DRUGS (23)
  1. RINVOQ [Suspect]
     Active Substance: UPADACITINIB
     Indication: Ankylosing spondylitis
     Dosage: FORM STRENGTH: 15 MILLIGRAMS
     Route: 048
     Dates: start: 20230404, end: 202405
  2. TRYPTIN [Concomitant]
     Indication: Migraine
  3. Continuous positive airway pressure (CPAP) [Concomitant]
     Indication: Sleep apnoea syndrome
  4. VITAMINS [Concomitant]
     Active Substance: VITAMINS
     Indication: Mineral supplementation
  5. ELIQUIS [Concomitant]
     Active Substance: APIXABAN
     Indication: Anticoagulant therapy
  6. PRASTERONE [Concomitant]
     Active Substance: PRASTERONE
     Indication: Migraine prophylaxis
  7. BENADRYL [Concomitant]
     Active Substance: DIPHENHYDRAMINE HYDROCHLORIDE
     Indication: Neuropathic pruritus
  8. NORCO [Concomitant]
     Active Substance: ACETAMINOPHEN\HYDROCODONE BITARTRATE
     Indication: Pain
  9. MOUNJARO [Concomitant]
     Active Substance: TIRZEPATIDE
     Indication: Overweight
  10. VOLTAREN [Concomitant]
     Active Substance: DICLOFENAC SODIUM
     Indication: Inflammatory pain
     Route: 061
  11. VALIUM [Concomitant]
     Active Substance: DIAZEPAM
     Indication: Blood pressure measurement
  12. MELOXICAM [Concomitant]
     Active Substance: MELOXICAM
     Indication: Antiinflammatory therapy
  13. PREDNISONE [Concomitant]
     Active Substance: PREDNISONE
     Indication: Inflammation
  14. HYDROCHLOROTHIAZIDE [Concomitant]
     Active Substance: HYDROCHLOROTHIAZIDE
     Indication: Hypertension
  15. ZOFRAN [Concomitant]
     Active Substance: ONDANSETRON HYDROCHLORIDE
     Indication: Nausea
  16. HYDROCORTISONE [Concomitant]
     Active Substance: HYDROCORTISONE
     Indication: Neuralgia
     Route: 061
  17. MAGNESIUM [Concomitant]
     Active Substance: MAGNESIUM
     Indication: Mineral supplementation
  18. HYDRALAZINE [Concomitant]
     Active Substance: HYDRALAZINE HYDROCHLORIDE
     Indication: Hypertension
  19. VENLAFAXINE HYDROCHLORIDE [Concomitant]
     Active Substance: VENLAFAXINE HYDROCHLORIDE
     Indication: Pain management
  20. LIDOCAINE [Concomitant]
     Active Substance: LIDOCAINE
     Indication: Pain
  21. SPIRONOLACTONE [Concomitant]
     Active Substance: SPIRONOLACTONE
     Indication: Hypertension
  22. VITAMIN B12 [Concomitant]
     Active Substance: CYANOCOBALAMIN
     Indication: Vitamin supplementation
  23. LEVOTHYROXINE [Concomitant]
     Active Substance: LEVOTHYROXINE
     Indication: Hypothyroidism
     Dosage: 1.75 MICROGRAM

REACTIONS (22)
  - Suicidal ideation [Not Recovered/Not Resolved]
  - Pain [Not Recovered/Not Resolved]
  - Peripheral swelling [Not Recovered/Not Resolved]
  - Inflammation [Unknown]
  - Thrombosis [Recovered/Resolved]
  - Back pain [Not Recovered/Not Resolved]
  - Bedridden [Unknown]
  - Dyspnoea [Recovering/Resolving]
  - Osteitis [Recovered/Resolved]
  - Pain in extremity [Not Recovered/Not Resolved]
  - Diverticulitis [Unknown]
  - Aphasia [Not Recovered/Not Resolved]
  - Cystitis [Unknown]
  - Dry mouth [Not Recovered/Not Resolved]
  - Skin discolouration [Not Recovered/Not Resolved]
  - Diarrhoea [Not Recovered/Not Resolved]
  - Paraesthesia [Not Recovered/Not Resolved]
  - Drug abuse [Unknown]
  - Hyperhidrosis [Not Recovered/Not Resolved]
  - Rotator cuff syndrome [Unknown]
  - Liver disorder [Unknown]
  - Unevaluable event [Not Recovered/Not Resolved]

NARRATIVE: CASE EVENT DATE: 20240601
